FAERS Safety Report 19612076 (Version 1)
Quarter: 2021Q3

REPORT INFORMATION
  Report Type: Spontaneous
  Country: CH (occurrence: CH)
  Receive Date: 20210727
  Receipt Date: 20210727
  Transmission Date: 20211014
  Serious: Yes (Other)
  Sender: FDA-Public Use
  Company Number: CH-SA-2021SA236651

PATIENT
  Age: 42 Year
  Sex: Male

DRUGS (4)
  1. DEXAMETHASONE. [Concomitant]
     Active Substance: DEXAMETHASONE
     Indication: STEROID THERAPY
     Dosage: UNK UNK, TID
     Route: 047
  2. TRIAMCINOLONE ACETONIDE. [Suspect]
     Active Substance: TRIAMCINOLONE ACETONIDE
     Indication: MACULAR OEDEMA
     Dosage: 40 MG
     Route: 031
  3. ACETAZOLAMIDE. [Concomitant]
     Active Substance: ACETAZOLAMIDE
     Indication: MACULAR OEDEMA
     Dosage: 250 MG
     Route: 048
  4. TRIAMCINOLONE ACETONIDE. [Suspect]
     Active Substance: TRIAMCINOLONE ACETONIDE
     Indication: ANTERIOR CHAMBER INFLAMMATION

REACTIONS (7)
  - Visual acuity reduced [Unknown]
  - Necrotising retinitis [Recovering/Resolving]
  - Retinal haemorrhage [Recovering/Resolving]
  - Retinopathy [Unknown]
  - Infective uveitis [Unknown]
  - Vitreous opacities [Unknown]
  - Drug ineffective [Unknown]
